FAERS Safety Report 16987201 (Version 1)
Quarter: 2019Q4

REPORT INFORMATION
  Report Type: Spontaneous
  Country: GB (occurrence: GB)
  Receive Date: 20191102
  Receipt Date: 20191102
  Transmission Date: 20200122
  Serious: Yes (Hospitalization, Other)
  Sender: FDA-Public Use
  Company Number: GB-TEVA-2019-GB-1129959

PATIENT
  Age: 28 Year
  Sex: Female
  Weight: 101 kg

DRUGS (3)
  1. OMEPRAZOLE. [Interacting]
     Active Substance: OMEPRAZOLE
     Indication: ABDOMINAL PAIN UPPER
     Dosage: 20 MILLIGRAM
     Route: 048
     Dates: start: 20190925, end: 20191002
  2. SALBUTAMOL [Concomitant]
     Active Substance: ALBUTEROL
  3. ESCITALOPRAM [Suspect]
     Active Substance: ESCITALOPRAM OXALATE
     Route: 065

REACTIONS (12)
  - Drug interaction [Unknown]
  - Suicidal behaviour [Recovered/Resolved]
  - Pyrexia [Recovered/Resolved]
  - Heart rate increased [Recovered/Resolved]
  - Seizure [Recovered/Resolved with Sequelae]
  - Nausea [Recovered/Resolved]
  - Muscle spasms [Recovered/Resolved with Sequelae]
  - Suicide attempt [Recovering/Resolving]
  - Hyperhidrosis [Recovered/Resolved]
  - Loss of consciousness [Recovered/Resolved with Sequelae]
  - Malaise [Recovering/Resolving]
  - Paranoia [Recovered/Resolved]

NARRATIVE: CASE EVENT DATE: 20191001
